FAERS Safety Report 21101474 (Version 1)
Quarter: 2022Q3

REPORT INFORMATION
  Report Type: Spontaneous
  Country: US (occurrence: None)
  Receive Date: 20220719
  Receipt Date: 20220719
  Transmission Date: 20221026
  Serious: No
  Sender: FDA-Public Use
  Company Number: None

PATIENT

DRUGS (2)
  1. DIAZEPAM [Suspect]
     Active Substance: DIAZEPAM
     Route: 048
  2. DIAZEPAM [Suspect]
     Active Substance: DIAZEPAM
     Route: 048

REACTIONS (8)
  - Product dispensing error [None]
  - Incorrect dose administered [None]
  - Lethargy [None]
  - Respiratory rate decreased [None]
  - Blood glucose decreased [None]
  - Product communication issue [None]
  - Aphonia [None]
  - Fall [None]
